FAERS Safety Report 7530280-5 (Version None)
Quarter: 2011Q2

REPORT INFORMATION
  Report Type: 
  Country: None (occurrence: None)
  Receive Date: 20110607
  Receipt Date: 20110531
  Transmission Date: 20111010
  Serious: Yes (Hospitalization, Other)
  Sender: FDA-Public Use
  Company Number: US-CEPHALON-2011002160

PATIENT
  Sex: Female
  Weight: 100 kg

DRUGS (2)
  1. PROVIGIL [Suspect]
     Indication: SLEEP APNOEA SYNDROME
     Route: 048
     Dates: start: 20051101, end: 20080101
  2. PROVIGIL [Suspect]
     Route: 048
     Dates: start: 20101201

REACTIONS (5)
  - GASTROOESOPHAGEAL REFLUX DISEASE [None]
  - DYSPNOEA [None]
  - ASTHMA [None]
  - SLEEP APNOEA SYNDROME [None]
  - OBSTRUCTIVE AIRWAYS DISORDER [None]
